FAERS Safety Report 6198923-9 (Version None)
Quarter: 2009Q2

REPORT INFORMATION
  Report Type: 
  Country: None (occurrence: None)
  Receive Date: 20090522
  Receipt Date: 20090514
  Transmission Date: 20091009
  Serious: Yes (Other)
  Sender: FDA-Public Use
  Company Number: PHHY2009NZ18538

PATIENT

DRUGS (1)
  1. RITALIN [Suspect]
     Dosage: UNK
     Route: 048

REACTIONS (1)
  - ANAEMIA MACROCYTIC [None]
